FAERS Safety Report 5270181-9 (Version None)
Quarter: 2007Q1

REPORT INFORMATION
  Report Type: 
  Country: None (occurrence: None)
  Receive Date: 20070314
  Receipt Date: 20070301
  Transmission Date: 20070707
  Serious: Yes (Death)
  Sender: FDA-Public Use
  Company Number: 2007SP003851

PATIENT
  Age: 40 Year
  Sex: Male
  Weight: 70 kg

DRUGS (2)
  1. RIBAVIRIN [Suspect]
     Indication: HEPATITIS C
     Dosage: 800 MG; ; PO
     Route: 048
     Dates: start: 20061003
  2. PEGASYS [Suspect]
     Indication: HEPATITIS C
     Dosage: 180 MCG; ; SC
     Route: 058
     Dates: start: 20061003

REACTIONS (1)
  - COMPLETED SUICIDE [None]
